FAERS Safety Report 15043360 (Version 1)
Quarter: 2018Q2

REPORT INFORMATION
  Report Type: Spontaneous
  Country: JP (occurrence: JP)
  Receive Date: 20180621
  Receipt Date: 20180621
  Transmission Date: 20180711
  Serious: Yes (Other)
  Sender: FDA-Public Use
  Company Number: JP-PFIZER INC-2018251924

PATIENT
  Sex: Male

DRUGS (4)
  1. 5-FU [Concomitant]
     Active Substance: FLUOROURACIL
     Indication: PANCREATIC CARCINOMA
     Dosage: UNK
     Dates: start: 2017, end: 2017
  2. CAMPTO [Suspect]
     Active Substance: IRINOTECAN
     Indication: PANCREATIC CARCINOMA
     Dosage: UNK, 1X/DAY
     Route: 041
     Dates: start: 2017, end: 2017
  3. LEVOFOLINATE CALCIUM [Concomitant]
     Active Substance: LEVOLEUCOVORIN CALCIUM
     Indication: PANCREATIC CARCINOMA
     Dosage: UNK
     Dates: start: 2017, end: 2017
  4. ELPLAT [Suspect]
     Active Substance: OXALIPLATIN
     Indication: PANCREATIC CARCINOMA
     Dosage: UNK, 1X/DAY
     Route: 041
     Dates: start: 2017, end: 2017

REACTIONS (2)
  - Hypophagia [Recovering/Resolving]
  - Anaphylactic shock [Unknown]

NARRATIVE: CASE EVENT DATE: 2017
